FAERS Safety Report 24068507 (Version 1)
Quarter: 2024Q3

REPORT INFORMATION
  Report Type: Report from Study
  Country: US (occurrence: US)
  Receive Date: 20240710
  Receipt Date: 20240710
  Transmission Date: 20241017
  Serious: No
  Sender: ROCHE
  Company Number: US-ROCHE-3500868

PATIENT
  Age: 68 Year
  Sex: Female

DRUGS (2)
  1. ROZLYTREK [Suspect]
     Active Substance: ENTRECTINIB
     Indication: Lung neoplasm malignant
     Dosage: TAKE 2 CAPSULE(S) BY MOUTH EVERY DAY
     Route: 048
  2. ROZLYTREK [Suspect]
     Active Substance: ENTRECTINIB
     Indication: Bronchial carcinoma

REACTIONS (1)
  - Back pain [Unknown]
